FAERS Safety Report 8591636-5 (Version None)
Quarter: 2012Q3

REPORT INFORMATION
  Report Type: 
  Country: None (occurrence: None)
  Receive Date: 20120814
  Receipt Date: 20120806
  Transmission Date: 20120928
  Serious: Yes (Hospitalization)
  Sender: FDA-Public Use
  Company Number: CN-SANOFI-AVENTIS-2012SA056542

PATIENT
  Age: 89 Year
  Sex: Male
  Weight: 53 kg

DRUGS (2)
  1. ATORVASTATIN CALCIUM [Concomitant]
     Route: 048
     Dates: start: 20090403
  2. PLAVIX [Suspect]
     Route: 048
     Dates: start: 20090403, end: 20090407

REACTIONS (3)
  - HENOCH-SCHONLEIN PURPURA [None]
  - HAEMORRHAGE SUBCUTANEOUS [None]
  - MUSCULAR WEAKNESS [None]
